FAERS Safety Report 8298770-8 (Version None)
Quarter: 2012Q2

REPORT INFORMATION
  Report Type: 
  Country: None (occurrence: None)
  Receive Date: 20120419
  Receipt Date: 20120411
  Transmission Date: 20120825
  Serious: Yes (Other)
  Sender: FDA-Public Use
  Company Number: US-CELGENEUS-163-21880-12041333

PATIENT
  Age: 56 Year
  Sex: Female
  Weight: 104.33 kg

DRUGS (3)
  1. VELCADE [Concomitant]
     Indication: MULTIPLE MYELOMA
     Route: 065
     Dates: start: 20101201, end: 20110401
  2. REVLIMID [Suspect]
     Indication: MULTIPLE MYELOMA
     Dosage: 25 MILLIGRAM
     Route: 048
     Dates: start: 20101201, end: 20110401
  3. DEXAMETHASONE [Concomitant]
     Indication: MULTIPLE MYELOMA
     Route: 065
     Dates: start: 20101201, end: 20110401

REACTIONS (4)
  - GASTROINTESTINAL DISORDER [None]
  - DIABETES MELLITUS [None]
  - CARDIOVASCULAR DISORDER [None]
  - MENTAL DISORDER [None]
